FAERS Safety Report 22339428 (Version 1)
Quarter: 2023Q2

REPORT INFORMATION
  Report Type: Spontaneous
  Country: GB (occurrence: GB)
  Receive Date: 20230518
  Receipt Date: 20230518
  Transmission Date: 20230722
  Serious: Yes (Other)
  Sender: FDA-Public Use
  Company Number: GB-AMGEN-GBRSP2023083381

PATIENT

DRUGS (2)
  1. XGEVA [Suspect]
     Active Substance: DENOSUMAB
     Indication: Breast cancer metastatic
     Dosage: UNK
     Route: 065
  2. XGEVA [Suspect]
     Active Substance: DENOSUMAB
     Indication: Prophylaxis

REACTIONS (7)
  - Atypical fracture [Unknown]
  - Osteonecrosis of jaw [Unknown]
  - Femur fracture [Unknown]
  - Foot fracture [Unknown]
  - Rib fracture [Unknown]
  - Radius fracture [Unknown]
  - Hypocalcaemia [Unknown]
